FAERS Safety Report 25439854 (Version 1)
Quarter: 2025Q2

REPORT INFORMATION
  Report Type: Spontaneous
  Country: US (occurrence: None)
  Receive Date: 20250615
  Receipt Date: 20250615
  Transmission Date: 20250717
  Serious: Yes (Disabling, Other)
  Sender: FDA-CTU
  Company Number: None

PATIENT
  Age: 33 Year
  Sex: Female
  Weight: 65.25 kg

DRUGS (5)
  1. XULANE [Suspect]
     Active Substance: ETHINYL ESTRADIOL\NORELGESTROMIN
     Indication: Contraception
     Dates: start: 20250301, end: 20250612
  2. LIOTHYRONINE [Concomitant]
     Active Substance: LIOTHYRONINE
  3. LEVOTHYROXINE [Concomitant]
     Active Substance: LEVOTHYROXINE
  4. ADDERALL [Concomitant]
     Active Substance: AMPHETAMINE ASPARTATE\AMPHETAMINE SULFATE\DEXTROAMPHETAMINE SACCHARATE\DEXTROAMPHETAMINE SULFATE
  5. VITAMINS [Concomitant]
     Active Substance: VITAMINS

REACTIONS (18)
  - Condition aggravated [None]
  - Cardiac disorder [None]
  - Nausea [None]
  - Mood swings [None]
  - Pain [None]
  - Vaginal haemorrhage [None]
  - Thrombosis [None]
  - Muscle spasms [None]
  - Abdominal distension [None]
  - Fluid retention [None]
  - Abdominal pain [None]
  - Headache [None]
  - Migraine [None]
  - Brain fog [None]
  - Fatigue [None]
  - Peripheral swelling [None]
  - Muscular weakness [None]
  - Application site pain [None]
